FAERS Safety Report 7221704-1 (Version None)
Quarter: 2011Q1

REPORT INFORMATION
  Report Type: 
  Country: None (occurrence: None)
  Receive Date: 20110112
  Receipt Date: 20110107
  Transmission Date: 20110831
  Serious: Yes (Hospitalization)
  Sender: FDA-Public Use
  Company Number: FR-ROCHE-752239

PATIENT
  Sex: Male
  Weight: 93 kg

DRUGS (7)
  1. VITAMIN B1 TAB [Suspect]
     Dosage: TRADE NAME REPORTED AS VITAMIN B1 AGUETTANT
     Route: 065
  2. PERINDOPRIL ERBUMINE [Suspect]
     Indication: HYPERTENSION
     Route: 065
  3. LASIX [Suspect]
     Route: 065
  4. VITAMIN B6 [Suspect]
     Dosage: TRADE NAME REPORTED AS VITAMIN B6 AGUETTANT
     Route: 065
  5. ROCEPHIN [Suspect]
     Route: 065
  6. LEXOMIL [Suspect]
     Route: 065
  7. ADVIL [Suspect]
     Route: 065

REACTIONS (3)
  - PYREXIA [None]
  - COUGH [None]
  - SPUTUM INCREASED [None]
